FAERS Safety Report 8435511-5 (Version None)
Quarter: 2012Q2

REPORT INFORMATION
  Report Type: 
  Country: None (occurrence: None)
  Receive Date: 20120614
  Receipt Date: 20120608
  Transmission Date: 20120825
  Serious: Yes (Hospitalization)
  Sender: FDA-Public Use
  Company Number: FR-PFIZER INC-2012137821

PATIENT
  Age: 77 Year
  Sex: Female

DRUGS (4)
  1. TRIMEBUTINE [Concomitant]
  2. OXYCONTIN [Concomitant]
  3. DOMPERIDONE [Concomitant]
  4. LYRICA [Suspect]
     Indication: NEURALGIA
     Dosage: 300 MG, 2X/DAY
     Route: 048
     Dates: start: 20111101

REACTIONS (1)
  - CARDIAC FAILURE [None]
